FAERS Safety Report 15817776 (Version 1)
Quarter: 2019Q1

REPORT INFORMATION
  Report Type: Spontaneous
  Country: GB (occurrence: GB)
  Receive Date: 20190113
  Receipt Date: 20190113
  Transmission Date: 20190417
  Serious: Yes (Other)
  Sender: FDA-Public Use
  Company Number: GB-TEVA-2019-GB-998470

PATIENT
  Age: 68 Year
  Sex: Female
  Weight: 60 kg

DRUGS (10)
  1. FOLIC ACID. [Concomitant]
     Active Substance: FOLIC ACID
     Dosage: 6/7 DAYS
     Dates: start: 20180530
  2. ALFACALCIDOL [Concomitant]
     Active Substance: ALFACALCIDOL
     Dosage: 1 DOSAGE FORMS DAILY;
     Dates: start: 20180530
  3. METHOTREXATE. [Concomitant]
     Active Substance: METHOTREXATE
     Route: 058
     Dates: start: 20180530
  4. PARACETAMOL [Concomitant]
     Active Substance: ACETAMINOPHEN
     Dosage: 8 DOSAGE FORMS DAILY;
     Dates: start: 20180530
  5. LANSOPRAZOLE. [Concomitant]
     Active Substance: LANSOPRAZOLE
     Dosage: 2 DOSAGE FORMS DAILY;
     Dates: start: 20180530
  6. DIAZEPAM. [Suspect]
     Active Substance: DIAZEPAM
     Dosage: 15 MILLIGRAM DAILY; FOR 5 DAYS
     Dates: start: 20181213
  7. BUTEC [Concomitant]
     Active Substance: BUPRENORPHINE
     Dosage: APPLY
     Dates: start: 20180530
  8. ALENDRONIC ACID [Concomitant]
     Active Substance: ALENDRONIC ACID
     Dosage: SWALLOWED WHOLE WITH PLENTY OF WATER
     Route: 048
     Dates: start: 20180530
  9. HYOSCINE BUTYLBROMIDE [Concomitant]
     Active Substance: BUTYLSCOPOLAMINE
     Dosage: 4 DOSAGE FORMS DAILY;
     Dates: start: 20181012, end: 20181019
  10. LEVOTHYROXINE. [Concomitant]
     Active Substance: LEVOTHYROXINE
     Dosage: 1 DOSAGE FORMS DAILY;
     Dates: start: 20180530

REACTIONS (2)
  - Vomiting [Recovering/Resolving]
  - Nausea [Unknown]

NARRATIVE: CASE EVENT DATE: 20181214
